FAERS Safety Report 5399945-8 (Version None)
Quarter: 2007Q3

REPORT INFORMATION
  Report Type: 
  Country: None (occurrence: None)
  Receive Date: 20070730
  Receipt Date: 20070720
  Transmission Date: 20080115
  Serious: Yes (Hospitalization, Other)
  Sender: FDA-Public Use
  Company Number: CH-JNJFOC-20070704573

PATIENT
  Age: 62 Year
  Sex: Male

DRUGS (8)
  1. DURAGESIC-100 [Suspect]
     Indication: PAIN
     Route: 062
  2. STOCRIN [Suspect]
     Indication: HIV INFECTION
     Route: 048
  3. PANTOPRAZOLE SODIUM [Suspect]
     Indication: GASTRITIS
     Route: 048
  4. LAMIVUDINE [Suspect]
     Indication: HIV INFECTION
     Route: 048
  5. VIREAD [Suspect]
     Indication: HIV INFECTION
     Route: 048
  6. KEPPRA [Suspect]
     Indication: EPILEPSY
     Route: 048
  7. PRADIF [Suspect]
     Indication: PROSTATIC DISORDER
     Route: 048
  8. VALCYTE [Suspect]
     Indication: DRUG USE FOR UNKNOWN INDICATION
     Route: 048

REACTIONS (5)
  - DERMATITIS EXFOLIATIVE [None]
  - DRUG ERUPTION [None]
  - INCORRECT DRUG ADMINISTRATION DURATION [None]
  - PHOTOSENSITIVITY REACTION [None]
  - RASH ERYTHEMATOUS [None]
